FAERS Safety Report 9628808 (Version 2)
Quarter: 2013Q4

REPORT INFORMATION
  Report Type: Spontaneous
  Country: IE (occurrence: IE)
  Receive Date: 20131017
  Receipt Date: 20131029
  Transmission Date: 20140711
  Serious: Yes (Hospitalization, Other)
  Sender: FDA-Public Use
  Company Number: IE-ASTRAZENECA-2013SE74865

PATIENT
  Age: 84 Year
  Sex: Male

DRUGS (3)
  1. XYLOCAINE [Suspect]
     Indication: ENDOSCOPY UPPER GASTROINTESTINAL TRACT
     Dosage: 10MG/DOSE
     Route: 049
     Dates: start: 20130919, end: 20130919
  2. XYLOCAINE [Suspect]
     Route: 065
  3. OPTIRAY 300 [Suspect]
     Indication: COMPUTERISED TOMOGRAM
     Route: 042
     Dates: start: 20130919, end: 20130919

REACTIONS (1)
  - Anaphylactic reaction [Recovered/Resolved]
